FAERS Safety Report 8237669-X (Version None)
Quarter: 2012Q1

REPORT INFORMATION
  Report Type: 
  Country: None (occurrence: None)
  Receive Date: 20120309
  Receipt Date: 20110210
  Transmission Date: 20120608
  Serious: Yes (Other)
  Sender: FDA-Public Use
  Company Number: PHHY2011US01131

PATIENT
  Age: 50 Year
  Sex: Female

DRUGS (6)
  1. EXTAVIA [Suspect]
     Indication: MULTIPLE SCLEROSIS
     Dosage: 0.25 MG, QOD, SUBCUTANEOUS
     Route: 058
     Dates: start: 20100908
  2. IBUPROFEN (ADVIL) [Concomitant]
  3. BIAXIN [Concomitant]
  4. TOPAMAX [Concomitant]
  5. STEROIDS NOS (NO INGREDIENTS/SUBSTANCES) [Concomitant]
  6. NORTRIPTYLINE HCL [Concomitant]

REACTIONS (10)
  - INJECTION SITE RASH [None]
  - HYPOAESTHESIA [None]
  - MULTIPLE SCLEROSIS RELAPSE [None]
  - MUSCULOSKELETAL DISCOMFORT [None]
  - GAIT DISTURBANCE [None]
  - STRESS [None]
  - INJECTION SITE ERYTHEMA [None]
  - INJECTION SITE PRURITUS [None]
  - INJECTION SITE PAIN [None]
  - INJECTION SITE REACTION [None]
